FAERS Safety Report 6871982-3 (Version None)
Quarter: 2010Q3

REPORT INFORMATION
  Report Type: 
  Country: None (occurrence: None)
  Receive Date: 20100723
  Receipt Date: 20100713
  Transmission Date: 20110219
  Serious: Yes (Other)
  Sender: FDA-Public Use
  Company Number: DE-PFIZER INC-2010087429

PATIENT
  Age: 72 Year
  Sex: Female
  Weight: 80 kg

DRUGS (7)
  1. LYRICA [Suspect]
     Indication: POLYNEUROPATHY
     Dosage: UNK
  2. GABAPENTIN [Suspect]
  3. TILIDINE HYDROCHLORIDE [Suspect]
  4. VALORON ^GOEDECKE^ [Concomitant]
     Indication: POLYNEUROPATHY
  5. ASPIRIN [Concomitant]
  6. LISINOPRIL [Concomitant]
  7. PANTOPRAZOLE [Concomitant]

REACTIONS (4)
  - DRUG INEFFECTIVE [None]
  - HAEMATOMA [None]
  - PAIN [None]
  - WEIGHT INCREASED [None]
